FAERS Safety Report 22322574 (Version 1)
Quarter: 2023Q2

REPORT INFORMATION
  Report Type: Spontaneous
  Country: US (occurrence: US)
  Receive Date: 20230516
  Receipt Date: 20230516
  Transmission Date: 20230721
  Serious: No
  Sender: FDA-Public Use
  Company Number: US-Axsome Therapeutics, Inc.-AXS202211-001016

PATIENT
  Sex: Female

DRUGS (3)
  1. SUNOSI [Suspect]
     Active Substance: SOLRIAMFETOL
     Indication: Hypersomnia
     Dosage: UNK
     Route: 048
  2. ZOLOFT [Concomitant]
     Active Substance: SERTRALINE HYDROCHLORIDE
     Indication: Depression
     Dosage: UNK
  3. DYSPORT [Concomitant]
     Active Substance: ABOBOTULINUMTOXINA
     Indication: Skin wrinkling

REACTIONS (2)
  - Nausea [Unknown]
  - Off label use [Unknown]
